FAERS Safety Report 4724302-4 (Version None)
Quarter: 2005Q3

REPORT INFORMATION
  Report Type: 
  Country: None (occurrence: None)
  Receive Date: 20050721
  Receipt Date: 20050721
  Transmission Date: 20060218
  Serious: Yes (Hospitalization)
  Sender: FDA-Public Use
  Company Number: None

PATIENT
  Age: 75 Year
  Sex: Male
  Weight: 86.5 kg

DRUGS (13)
  1. FOSRENOL [Suspect]
     Indication: HYPERPHOSPHATAEMIA
     Dosage: 500 MG, 3X/DAY;TID   ORAL
     Route: 048
     Dates: start: 20050627, end: 20050702
  2. FOSRENOL [Suspect]
     Indication: HYPERPHOSPHATAEMIA
     Dosage: 500 MG, 3X/DAY;TID   ORAL
     Route: 048
     Dates: start: 20050706
  3. COMBIVENT /GFR/ (IPRATROPIUM BROMIDE, SALBUTAMOL SULFATE) [Concomitant]
  4. DULCOLAX [Concomitant]
  5. ENDOCET (OXYCODONE HYDROCHLORIDE) [Concomitant]
  6. HUMULIN (INSULIN HUMAN, INSULIN ISOPHANE, HUMAN BIOSYNTHETIC) [Concomitant]
  7. ISOSORBIDE (ISOSORBIDE) [Concomitant]
  8. METOCLOPRAMIDE [Concomitant]
  9. MIRALAX [Concomitant]
  10. NEXIUM/UNK/ (ESOMEPRAZOLE) [Concomitant]
  11. NITROGLYCERIN ^NIHON KAYAKU^ (GLYCERYL TRINITRATE) [Concomitant]
  12. NORVASC/DEN/ (AMLODIPINE BESILATE) [Concomitant]
  13. TOPROL-XL [Concomitant]

REACTIONS (1)
  - PANCREATITIS [None]
